FAERS Safety Report 24279308 (Version 1)
Quarter: 2024Q3

REPORT INFORMATION
  Report Type: Spontaneous
  Country: FR (occurrence: FR)
  Receive Date: 20240903
  Receipt Date: 20240903
  Transmission Date: 20241017
  Serious: Yes (Death, Other)
  Sender: JAZZ
  Company Number: FR-JAZZ PHARMACEUTICALS-2024-FR-013968

PATIENT

DRUGS (4)
  1. DEFITELIO [Suspect]
     Active Substance: DEFIBROTIDE SODIUM
     Indication: Product used for unknown indication
     Dosage: 6.25 MILLIGRAM/KILOGRAM, QID
     Route: 042
     Dates: start: 20150210
  2. METHYLPREDNISOLONE [Concomitant]
     Active Substance: METHYLPREDNISOLONE
     Indication: Product used for unknown indication
     Dosage: 70 MILLIGRAM, QD
     Dates: start: 20150212
  3. IMIPENEM [Concomitant]
     Active Substance: IMIPENEM
     Indication: Product used for unknown indication
  4. CASPOFUNGIN [Concomitant]
     Active Substance: CASPOFUNGIN
     Indication: Product used for unknown indication

REACTIONS (7)
  - Encephalopathy [Fatal]
  - Acute kidney injury [Fatal]
  - Ascites [Fatal]
  - Metabolic acidosis [Fatal]
  - Hepatomegaly [Fatal]
  - Prothrombin level decreased [Fatal]
  - Factor V deficiency [Fatal]

NARRATIVE: CASE EVENT DATE: 20150213
